FAERS Safety Report 21626523 (Version 1)
Quarter: 2022Q4

REPORT INFORMATION
  Report Type: Report from Study
  Country: US (occurrence: US)
  Receive Date: 20221122
  Receipt Date: 20221122
  Transmission Date: 20230113
  Serious: Yes (Other)
  Sender: FDA-Public Use
  Company Number: US-SA-SAC20221117000271

PATIENT
  Sex: Female

DRUGS (14)
  1. BELUMOSUDIL MESYLATE [Suspect]
     Active Substance: BELUMOSUDIL MESYLATE
     Indication: Graft versus host disease
     Dosage: 200 MG, QD, IN AM WITH FOOD
     Dates: start: 20220901
  2. PREDNISONE [Concomitant]
     Active Substance: PREDNISONE
     Dosage: 40MG QD
  3. MIRALAX [Concomitant]
     Active Substance: POLYETHYLENE GLYCOL 3350
     Indication: Constipation
  4. BOTOX [Concomitant]
     Active Substance: ONABOTULINUMTOXINA
  5. LEVOTHYROXINE [Concomitant]
     Active Substance: LEVOTHYROXINE
  6. ANORO ELLIPTA [Concomitant]
     Active Substance: UMECLIDINIUM BROMIDE\VILANTEROL TRIFENATATE
  7. AMOXICILLIN [Concomitant]
     Active Substance: AMOXICILLIN
  8. BACTRIM [Concomitant]
     Active Substance: SULFAMETHOXAZOLE\TRIMETHOPRIM
  9. ROSUVASTATIN [Concomitant]
     Active Substance: ROSUVASTATIN
  10. AMLODIPINE [Concomitant]
     Active Substance: AMLODIPINE BESYLATE
  11. VITAMIN D NOS [Concomitant]
     Active Substance: VITAMIN D NOS
  12. COMPAZINE [Concomitant]
     Active Substance: PROCHLORPERAZINE MALEATE
  13. RESTASIS [Concomitant]
     Active Substance: CYCLOSPORINE
  14. HYDROCHLOROTHIAZIDE [Concomitant]
     Active Substance: HYDROCHLOROTHIAZIDE

REACTIONS (12)
  - Graft versus host disease in skin [Not Recovered/Not Resolved]
  - Rash [Not Recovered/Not Resolved]
  - Skin exfoliation [Not Recovered/Not Resolved]
  - Fatigue [Unknown]
  - Transaminases increased [Unknown]
  - Dysphagia [Unknown]
  - Constipation [Unknown]
  - Weight increased [Unknown]
  - Dyspnoea [Unknown]
  - Joint swelling [Unknown]
  - Abdominal distension [Unknown]
  - Therapeutic response decreased [Unknown]
